FAERS Safety Report 5736395-6 (Version None)
Quarter: 2008Q2

REPORT INFORMATION
  Report Type: 
  Country: None (occurrence: None)
  Receive Date: 20080513
  Receipt Date: 20080501
  Transmission Date: 20081010
  Serious: Yes (Hospitalization, Congenital Anomaly)
  Sender: FDA-Public Use
  Company Number: A0681926A

PATIENT
  Sex: Male

DRUGS (5)
  1. PAXIL [Suspect]
     Indication: PANIC ATTACK
     Dosage: 30MG UNKNOWN
     Dates: start: 20021201, end: 20030101
  2. PAROXETINE HCL [Suspect]
     Indication: PANIC ATTACK
     Dosage: 30MG UNKNOWN
     Dates: start: 20031001, end: 20040101
  3. HUMULIN 70/30 [Concomitant]
  4. HUMULIN N [Concomitant]
  5. VITAMIN TAB [Concomitant]

REACTIONS (11)
  - AORTIC VALVE INCOMPETENCE [None]
  - BUNDLE BRANCH BLOCK LEFT [None]
  - CARDIAC FAILURE CONGESTIVE [None]
  - CARDIAC MURMUR [None]
  - DRUG EXPOSURE DURING PREGNANCY [None]
  - PATENT DUCTUS ARTERIOSUS [None]
  - PULMONARY VALVE STENOSIS [None]
  - RIGHT VENTRICULAR HYPERTROPHY [None]
  - TRANSPOSITION OF THE GREAT VESSELS [None]
  - TRICUSPID VALVE INCOMPETENCE [None]
  - VENTRICULAR SEPTAL DEFECT [None]
